FAERS Safety Report 24439298 (Version 1)
Quarter: 2024Q4

REPORT INFORMATION
  Report Type: Spontaneous
  Country: US (occurrence: None)
  Receive Date: 20241014
  Receipt Date: 20241014
  Transmission Date: 20250115
  Serious: Yes (Life-Threatening, Hospitalization, Disabling)
  Sender: Public
  Company Number: None

PATIENT
  Age: 58 Year
  Sex: Female
  Weight: 72 kg

DRUGS (16)
  1. TYSABRI [Suspect]
     Active Substance: NATALIZUMAB
     Indication: Multiple sclerosis
     Dosage: OTHER FREQUENCY : MONTHLY;?
     Route: 042
     Dates: start: 20220215, end: 20240905
  2. RITUXAN [Suspect]
     Active Substance: RITUXIMAB
  3. PREDNISONE [Suspect]
     Active Substance: PREDNISONE
  4. GABAPENTIN [Concomitant]
  5. VENLAFAXINE [Concomitant]
  6. valacyclovir [Concomitant]
  7. OXYBUTYNIN [Concomitant]
  8. pantaprzale [Concomitant]
  9. SULFAMETHOXAZOLE [Concomitant]
     Active Substance: SULFAMETHOXAZOLE
  10. retuxin [Concomitant]
  11. allergy shoes [Concomitant]
  12. VITAMIN D [Concomitant]
     Active Substance: VITAMIN D NOS
  13. FOLIC ACID [Concomitant]
  14. CALTRATE [Concomitant]
     Active Substance: CALCIUM CARBONATE
  15. BIOTIN [Concomitant]
  16. B12 [Concomitant]

REACTIONS (1)
  - Autoimmune haemolytic anaemia [None]

NARRATIVE: CASE EVENT DATE: 20240905
